FAERS Safety Report 20308500 (Version 1)
Quarter: 2022Q1

REPORT INFORMATION
  Report Type: Other
  Country: IL (occurrence: None)
  Receive Date: 20220107
  Receipt Date: 20220107
  Transmission Date: 20220424
  Serious: Yes (Death, Hospitalization)
  Sender: FDA-Public Use
  Company Number: IL-ROCHE-2995595

PATIENT
  Age: 51 Year
  Sex: Female

DRUGS (1)
  1. OCREVUS [Suspect]
     Active Substance: OCRELIZUMAB
     Indication: Relapsing-remitting multiple sclerosis
     Dosage: MORE DOSAGE INFORMATION IS 600MG Q6M
     Route: 042
     Dates: start: 20171114

REACTIONS (4)
  - Urinary tract infection [Unknown]
  - Pneumonia [Unknown]
  - Dysphagia [Unknown]
  - Aspiration [Fatal]

NARRATIVE: CASE EVENT DATE: 20211102
